FAERS Safety Report 6232606-1 (Version None)
Quarter: 2009Q2

REPORT INFORMATION
  Report Type: 
  Country: None (occurrence: None)
  Receive Date: 20090615
  Receipt Date: 20090615
  Transmission Date: 20091009
  Serious: Yes (Disabling)
  Sender: FDA-Public Use
  Company Number: None

PATIENT
  Age: 79 Year
  Sex: Female
  Weight: 68.0396 kg

DRUGS (1)
  1. CITALOPRAM HYDROBROMIDE [Suspect]
     Indication: DEPRESSION
     Dosage: 60 MG 40AM 20PM
     Dates: start: 20080901

REACTIONS (5)
  - EYE DISORDER [None]
  - FALL [None]
  - JAW DISORDER [None]
  - LOSS OF CONSCIOUSNESS [None]
  - SYNCOPE [None]
